FAERS Safety Report 5932978-9 (Version None)
Quarter: 2008Q4

REPORT INFORMATION
  Report Type: 
  Country: None (occurrence: None)
  Receive Date: 20081027
  Receipt Date: 20081027
  Transmission Date: 20090506
  Serious: Yes (Life-Threatening, Hospitalization, Disabling)
  Sender: FDA-Public Use
  Company Number: None

PATIENT
  Age: 55 Year
  Sex: Female
  Weight: 54.8852 kg

DRUGS (4)
  1. CHANTIX [Suspect]
     Indication: SMOKING CESSATION THERAPY
     Dosage: 1 TABLET ONCE DAILY 3 DAYS PO; 2 TABLETS BID 2 DAYS PO
     Route: 048
     Dates: start: 20080930, end: 20081003
  2. CHANTIX [Suspect]
     Indication: SMOKING CESSATION THERAPY
     Dosage: 1 TABLET ONCE DAILY 3 DAYS PO; 2 TABLETS BID 2 DAYS PO
     Route: 048
     Dates: start: 20081005, end: 20081005
  3. WELLBUTRIN [Concomitant]
  4. LAMICTAL [Concomitant]

REACTIONS (2)
  - INCORRECT DOSE ADMINISTERED [None]
  - SUICIDE ATTEMPT [None]
